FAERS Safety Report 18159434 (Version 2)
Quarter: 2021Q1

REPORT INFORMATION
  Report Type: Spontaneous
  Country: CA (occurrence: CA)
  Receive Date: 20200818
  Receipt Date: 20210306
  Transmission Date: 20210419
  Serious: Yes (Other)
  Sender: FDA-Public Use
  Company Number: CA-ROCHE-2660713

PATIENT
  Age: 39 Year
  Sex: Female

DRUGS (1)
  1. XOLAIR [Suspect]
     Active Substance: OMALIZUMAB
     Indication: ANAPHYLACTIC REACTION
     Route: 058

REACTIONS (6)
  - Diarrhoea [Unknown]
  - Product dose omission issue [Unknown]
  - Anaphylactic reaction [Unknown]
  - Flatulence [Unknown]
  - Condition aggravated [Unknown]
  - Infection [Unknown]
